FAERS Safety Report 8494835-6 (Version None)
Quarter: 2012Q3

REPORT INFORMATION
  Report Type: 
  Country: None (occurrence: None)
  Receive Date: 20120709
  Receipt Date: 20120629
  Transmission Date: 20120928
  Serious: Yes (Other)
  Sender: FDA-Public Use
  Company Number: US-JNJFOC-20120400709

PATIENT
  Age: 56 Year
  Sex: Female
  Weight: 86.64 kg

DRUGS (13)
  1. REMICADE [Suspect]
     Indication: RHEUMATOID ARTHRITIS
     Route: 042
  2. REMICADE [Suspect]
     Dosage: 46TH TREATMENT
     Route: 042
     Dates: start: 20120328
  3. HYDROCODONE [Concomitant]
     Indication: BACK PAIN
     Route: 065
  4. CELEXA [Concomitant]
     Route: 048
  5. RITALIN LA [Concomitant]
     Route: 048
  6. REMICADE [Suspect]
     Dosage: 45TH TREATMENT
     Route: 042
     Dates: start: 20120215
  7. METHOTREXATE [Concomitant]
     Route: 065
  8. VITAMIN B COMPLEX CAP [Concomitant]
     Route: 065
  9. ASPIRIN [Concomitant]
     Route: 048
  10. REMICADE [Suspect]
     Route: 042
     Dates: start: 20120509
  11. MELATONIN [Concomitant]
     Route: 048
  12. FOLVITE [Concomitant]
     Route: 065
  13. ZOCOR [Concomitant]
     Route: 048

REACTIONS (3)
  - SPINAL CORD NEOPLASM [None]
  - SPINAL COLUMN STENOSIS [None]
  - CERVICAL SPINAL STENOSIS [None]
